FAERS Safety Report 15396270 (Version 1)
Quarter: 2018Q3

REPORT INFORMATION
  Report Type: Other
  Country: US (occurrence: US)
  Receive Date: 20180918
  Receipt Date: 20180918
  Transmission Date: 20181010
  Serious: No
  Sender: FDA-Public Use
  Company Number: US-LEADIANT BIOSCIENCES INC-2018STPI000050

PATIENT
  Sex: Male

DRUGS (10)
  1. MELATONIN [Concomitant]
     Active Substance: MELATONIN
  2. AMOXICILLIN. [Concomitant]
     Active Substance: AMOXICILLIN
  3. OMEPRAZOLE. [Concomitant]
     Active Substance: OMEPRAZOLE
  4. PRAVASTATIN. [Concomitant]
     Active Substance: PRAVASTATIN
  5. MATULANE [Suspect]
     Active Substance: PROCARBAZINE HYDROCHLORIDE
     Indication: BRAIN NEOPLASM MALIGNANT
     Dosage: 100 MG, 8 TO 21 Q6 WEEK CYCLE
     Route: 048
     Dates: start: 20170920
  6. KEPPRA [Concomitant]
     Active Substance: LEVETIRACETAM
  7. MULTIVITAMIN                       /00097801/ [Concomitant]
     Active Substance: VITAMINS
  8. LISINOPRIL. [Concomitant]
     Active Substance: LISINOPRIL
  9. METFORMIN [Concomitant]
     Active Substance: METFORMIN HYDROCHLORIDE
  10. ONE TOUCH [Concomitant]

REACTIONS (3)
  - Nausea [Not Recovered/Not Resolved]
  - Platelet count decreased [Not Recovered/Not Resolved]
  - Fatigue [Not Recovered/Not Resolved]
